FAERS Safety Report 9146146 (Version 3)
Quarter: 2013Q2

REPORT INFORMATION
  Report Type: Report from Study
  Country: US (occurrence: US)
  Receive Date: 20130307
  Receipt Date: 20130607
  Transmission Date: 20140414
  Serious: No
  Sender: FDA-Public Use
  Company Number: US-VERTEX PHARMACEUTICALS INC.-2013-003116

PATIENT
  Age: 51 Year
  Sex: Female

DRUGS (6)
  1. VX-950 (TELAPREVIR) [Suspect]
     Indication: HEPATITIS C
     Dosage: UNK
     Dates: start: 20121120, end: 20130212
  2. PEGASYS [Suspect]
     Indication: HEPATITIS C
     Dosage: 180 ?G, QW
     Route: 058
     Dates: start: 20121120
  3. PEGASYS [Suspect]
     Dosage: 90 UNK, QW
     Route: 058
     Dates: end: 20130305
  4. RIBAVIRIN [Suspect]
     Indication: HEPATITIS C
     Dosage: 600 MG, BID
     Route: 048
     Dates: start: 20121120, end: 20130305
  5. ZOLOFT [Concomitant]
     Dosage: UNK
     Route: 048
  6. LISINOPRIL HYDROCHLORTHIAZID [Concomitant]

REACTIONS (5)
  - Neutropenia [Recovered/Resolved]
  - Decreased appetite [Unknown]
  - Malaise [Unknown]
  - Weight fluctuation [Unknown]
  - Drug ineffective [Recovered/Resolved]
